FAERS Safety Report 9162260 (Version 1)
Quarter: 2013Q1

REPORT INFORMATION
  Report Type: Spontaneous
  Country: US (occurrence: None)
  Receive Date: 20130222
  Receipt Date: 20130222
  Transmission Date: 20140127
  Serious: No
  Sender: FDA-Public Use
  Company Number: ACO_23612_2010

PATIENT
  Age: 44 Year
  Sex: Male

DRUGS (2)
  1. AMPYRA (DALFAMPRIDINE) TABLET, 10MG [Suspect]
     Indication: MULTIPLE SCLEROSIS
     Dosage: DF
     Dates: start: 201005, end: 20100611
  2. TYSABRI  (NATALIZUMAB) [Suspect]
     Indication: MULTIPLE SCLEROSIS
     Dosage: DF
     Dates: start: 20071130

REACTIONS (3)
  - Convulsion [None]
  - Syncope [None]
  - Loss of consciousness [None]
